FAERS Safety Report 4710865-1 (Version None)
Quarter: 2005Q3

REPORT INFORMATION
  Report Type: 
  Country: None (occurrence: None)
  Receive Date: 20050711
  Receipt Date: 20050214
  Transmission Date: 20060218
  Serious: Yes (Other)
  Sender: FDA-Public Use
  Company Number: NL-GLAXOSMITHKLINE-B0372231A

PATIENT
  Age: 26 Year
  Sex: Female

DRUGS (1)
  1. SUMATRIPTAN SUCCINATE [Suspect]
     Indication: MIGRAINE
     Dosage: 50MG UNKNOWN
     Route: 065
     Dates: start: 20020101

REACTIONS (2)
  - INFERTILITY [None]
  - INFERTILITY FEMALE [None]
